FAERS Safety Report 25444996 (Version 1)
Quarter: 2025Q2

REPORT INFORMATION
  Report Type: Report from Study
  Country: IR (occurrence: IR)
  Receive Date: 20250617
  Receipt Date: 20250617
  Transmission Date: 20250716
  Serious: Yes (Death, Hospitalization, Other)
  Sender: RANBAXY
  Company Number: IR-SUN PHARMACEUTICAL INDUSTRIES LTD-2025RR-512342

PATIENT
  Age: 93 Year
  Sex: Female

DRUGS (1)
  1. METFORMIN [Suspect]
     Active Substance: METFORMIN HYDROCHLORIDE
     Indication: Diabetes mellitus
     Route: 048

REACTIONS (6)
  - Cardiac arrest [Fatal]
  - Overdose [Unknown]
  - Depressed level of consciousness [Unknown]
  - Respiratory distress [Unknown]
  - Cold sweat [Unknown]
  - Arrhythmia [Unknown]
